FAERS Safety Report 15066909 (Version 1)
Quarter: 2018Q2

REPORT INFORMATION
  Report Type: Spontaneous
  Country: FR (occurrence: FR)
  Receive Date: 20180626
  Receipt Date: 20180626
  Transmission Date: 20180711
  Serious: Yes (Other)
  Sender: FDA-Public Use
  Company Number: PHHY2018FR027004

PATIENT
  Age: 84 Year
  Sex: Male

DRUGS (6)
  1. LASILIX [Concomitant]
     Active Substance: FUROSEMIDE
     Indication: PRODUCT USED FOR UNKNOWN INDICATION
     Dosage: 500 MG, (0.5 DF MORNING 0.25 DF NOON)
     Route: 048
  2. ENTRESTO [Suspect]
     Active Substance: SACUBITRIL\VALSARTAN
     Dosage: 2 DF SIMULTANEOUSLY (STRENGTH: 97/103 MG)
     Route: 065
  3. LASILIX [Concomitant]
     Active Substance: FUROSEMIDE
     Dosage: (? DF IN THE MORNING)
     Route: 048
  4. ENTRESTO [Suspect]
     Active Substance: SACUBITRIL\VALSARTAN
     Indication: CARDIAC FAILURE
     Dosage: 1 DF (STRENGTH: 91/103 MG) BID
     Route: 048
  5. ENTRESTO [Suspect]
     Active Substance: SACUBITRIL\VALSARTAN
     Dosage: 2 DF, BID  MORNING AND EVENING (STRENGHT: 49/51 MG)
     Route: 065
  6. ENTRESTO [Suspect]
     Active Substance: SACUBITRIL\VALSARTAN
     Dosage: 1 DF, BID MORNING AND EVENING (STRENGTH: 97/103 MG)
     Route: 048
     Dates: start: 20180619

REACTIONS (2)
  - Overdose [Unknown]
  - Hypotension [Not Recovered/Not Resolved]
